FAERS Safety Report 14772866 (Version 3)
Quarter: 2018Q2

REPORT INFORMATION
  Report Type: Spontaneous
  Country: US (occurrence: US)
  Receive Date: 20180418
  Receipt Date: 20180522
  Transmission Date: 20180711
  Serious: No
  Sender: FDA-Public Use
  Company Number: US-PFIZER INC-2018156581

PATIENT
  Age: 8 Month
  Sex: Male
  Weight: 7.79 kg

DRUGS (2)
  1. EUCRISA [Suspect]
     Active Substance: CRISABOROLE
     Indication: DERMATITIS ATOPIC
     Dosage: UNK, 1X/DAY
     Dates: start: 20180411, end: 20180413
  2. EUCRISA [Suspect]
     Active Substance: CRISABOROLE
     Dosage: 0.5 G, 2X/DAY (TWICE DAILY)
     Route: 061

REACTIONS (9)
  - Condition aggravated [Not Recovered/Not Resolved]
  - Swelling face [Not Recovered/Not Resolved]
  - Off label use [Unknown]
  - Rash papular [Not Recovered/Not Resolved]
  - Drug administered to patient of inappropriate age [Unknown]
  - Cheilitis [Not Recovered/Not Resolved]
  - Inflammation [Not Recovered/Not Resolved]
  - Erythema [Not Recovered/Not Resolved]
  - Dermatitis atopic [Not Recovered/Not Resolved]

NARRATIVE: CASE EVENT DATE: 201804
